FAERS Safety Report 24355427 (Version 1)
Quarter: 2024Q3

REPORT INFORMATION
  Report Type: Spontaneous
  Country: US (occurrence: US)
  Receive Date: 20240924
  Receipt Date: 20240924
  Transmission Date: 20241017
  Serious: No
  Sender: AZURITY PHARMACEUTICALS
  Company Number: US-AZURITY PHARMACEUTICALS, INC.-AZR202408-000516

PATIENT
  Sex: Male

DRUGS (1)
  1. TESTOSTERONE CYPIONATE [Suspect]
     Active Substance: TESTOSTERONE CYPIONATE
     Indication: Product used for unknown indication
     Dosage: UNK
     Route: 065

REACTIONS (3)
  - Injection site haemorrhage [Unknown]
  - Injection site pain [Unknown]
  - Product deposit [Unknown]
